FAERS Safety Report 8217405 (Version 5)
Quarter: 2013Q3

REPORT INFORMATION
  Report Type: Spontaneous
  Country: US (occurrence: US)
  Receive Date: 20111101
  Receipt Date: 20130823
  Transmission Date: 20140515
  Serious: Yes (Hospitalization, Other)
  Sender: FDA-Public Use
  Company Number: US-BAYER-2011-102118

PATIENT
  Age: 45 Year
  Sex: Female
  Weight: 109 kg

DRUGS (5)
  1. YASMIN [Suspect]
  2. YAZ [Suspect]
  3. TYLENOL REGULAR [Concomitant]
     Indication: PAIN
     Dosage: UNK UNK, PRN
  4. FLAGYL [Concomitant]
     Indication: BACTERIAL VAGINOSIS
     Dosage: UNK
     Route: 048
     Dates: start: 20090810
  5. MORPHINE [Concomitant]
     Indication: PAIN

REACTIONS (20)
  - Deep vein thrombosis [None]
  - Pulmonary embolism [None]
  - Renal failure acute [None]
  - Injury [None]
  - Loss of consciousness [None]
  - Hypoxia [None]
  - Pain [None]
  - Emotional distress [None]
  - Mental disorder [None]
  - Fear of death [None]
  - Fear of disease [None]
  - Asthenia [None]
  - Dyspnoea exertional [None]
  - Pain in extremity [None]
  - Joint swelling [None]
  - Muscle spasms [None]
  - Migraine [None]
  - Depression [None]
  - Anxiety [None]
  - Varicose vein [None]
